FAERS Safety Report 25528642 (Version 1)
Quarter: 2025Q3

REPORT INFORMATION
  Report Type: Other
  Country: EU (occurrence: EU)
  Receive Date: 20250708
  Receipt Date: 20250708
  Transmission Date: 20251020
  Serious: Yes (Life-Threatening)
  Sender: ZYDUS PHARM
  Company Number: None

PATIENT

DRUGS (6)
  1. ACETAMINOPHEN [Suspect]
     Active Substance: ACETAMINOPHEN
     Indication: Poisoning deliberate
     Route: 048
     Dates: start: 20250512, end: 20250512
  2. BACTRIM [Suspect]
     Active Substance: SULFAMETHOXAZOLE\TRIMETHOPRIM
     Indication: Poisoning deliberate
     Route: 048
     Dates: start: 20250512, end: 20250512
  3. BUSPIRONE [Suspect]
     Active Substance: BUSPIRONE HYDROCHLORIDE
     Indication: Poisoning deliberate
     Route: 048
     Dates: start: 20250512, end: 20250512
  4. CODEINE [Suspect]
     Active Substance: CODEINE
     Indication: Poisoning deliberate
     Route: 048
     Dates: start: 20250512, end: 20250512
  5. ACETAMINOPHEN\BELLADONNA LEAF\CAFFEINE\OPIUM [Suspect]
     Active Substance: ACETAMINOPHEN\BELLADONNA LEAF\CAFFEINE\OPIUM
     Indication: Poisoning deliberate
     Route: 048
     Dates: start: 20250512, end: 20250512
  6. CYAMEMAZINE [Suspect]
     Active Substance: CYAMEMAZINE
     Indication: Poisoning deliberate
     Route: 048
     Dates: start: 20250512, end: 20250512

REACTIONS (2)
  - Coma [Recovered/Resolved]
  - Intentional overdose [Recovered/Resolved]

NARRATIVE: CASE EVENT DATE: 20250512
